FAERS Safety Report 7176622-4 (Version None)
Quarter: 2010Q4

REPORT INFORMATION
  Report Type: 
  Country: None (occurrence: None)
  Receive Date: 20101220
  Receipt Date: 20101215
  Transmission Date: 20110411
  Serious: Yes (Death, Other)
  Sender: FDA-Public Use
  Company Number: PHHY2010JP85667

PATIENT
  Age: 12 Year
  Sex: Male

DRUGS (4)
  1. CYCLOSPORINE [Suspect]
     Indication: HISTIOCYTOSIS HAEMATOPHAGIC
     Route: 065
  2. RITUXIMAB [Concomitant]
     Indication: BURKITT'S LYMPHOMA
  3. METHOTREXATE [Concomitant]
     Indication: BURKITT'S LYMPHOMA
  4. ETOPOSIDE [Concomitant]

REACTIONS (3)
  - BURKITT'S LYMPHOMA RECURRENT [None]
  - KLEBSIELLA SEPSIS [None]
  - NERVOUS SYSTEM DISORDER [None]
